FAERS Safety Report 6611677-4 (Version None)
Quarter: 2010Q1

REPORT INFORMATION
  Report Type: 
  Country: None (occurrence: None)
  Receive Date: 20100226
  Receipt Date: 20100226
  Transmission Date: 20100710
  Serious: Yes (Death)
  Sender: FDA-Public Use
  Company Number: None

PATIENT
  Age: 87 Year
  Sex: Female
  Weight: 73 kg

DRUGS (1)
  1. XIGRIS [Suspect]
     Indication: UROSEPSIS
     Dosage: 24 MCG/KG/HR FOR 96 HOURS IV DRIP
     Route: 041

REACTIONS (3)
  - BLOOD PRESSURE DECREASED [None]
  - CARDIO-RESPIRATORY ARREST [None]
  - HAEMATEMESIS [None]
